FAERS Safety Report 11879101 (Version 1)
Quarter: 2015Q4

REPORT INFORMATION
  Report Type: Report from Study
  Country: BR (occurrence: BR)
  Receive Date: 20151230
  Receipt Date: 20151230
  Transmission Date: 20160305
  Serious: Yes (Death, Hospitalization, Other)
  Sender: FDA-Public Use
  Company Number: BR-BAYER-2015-494262

PATIENT
  Age: 57 Year
  Sex: Male
  Weight: 50 kg

DRUGS (7)
  1. LANTUS [Concomitant]
     Active Substance: INSULIN GLARGINE
     Indication: DIABETES MELLITUS
     Dosage: UNK
     Route: 058
     Dates: end: 20151124
  2. NEXAVAR [Suspect]
     Active Substance: SORAFENIB
     Indication: RENAL CANCER
     Dosage: 600 MG DAILY DOSE-2 TABLET IN MORNING AND 1 TABLET AT NIGHT
     Route: 048
     Dates: start: 20151108, end: 20151124
  3. LACTULONA [Concomitant]
     Indication: BLOOD BILIRUBIN INCREASED
     Route: 048
  4. DIPHERGAN [Concomitant]
     Dosage: UNK
     Route: 048
     Dates: end: 20151124
  5. THIOCTACID [Concomitant]
     Active Substance: THIOCTIC ACID
     Indication: DIABETES MELLITUS
     Dosage: UNK
     Route: 048
     Dates: end: 20151124
  6. NEXAVAR [Suspect]
     Active Substance: SORAFENIB
     Indication: RENAL CANCER
     Dosage: 200 MG, BID
     Route: 048
     Dates: start: 20151014, end: 20151107
  7. VITAMIN D [Concomitant]
     Active Substance: CHOLECALCIFEROL
     Dosage: UNK
     Route: 048
     Dates: end: 20151124

REACTIONS (4)
  - Renal cancer metastatic [Fatal]
  - Intestinal haemorrhage [Recovered/Resolved]
  - Hepatic failure [Fatal]
  - Respiratory arrest [Fatal]

NARRATIVE: CASE EVENT DATE: 20151123
